FAERS Safety Report 11820885 (Version 1)
Quarter: 2015Q4

REPORT INFORMATION
  Report Type: Spontaneous
  Country: US (occurrence: US)
  Receive Date: 20151210
  Receipt Date: 20151210
  Transmission Date: 20160305
  Serious: No
  Sender: FDA-Public Use
  Company Number: US-JNJFOC-20150719989

PATIENT
  Sex: Male

DRUGS (1)
  1. IMBRUVICA [Suspect]
     Active Substance: IBRUTINIB
     Indication: CHRONIC LYMPHOCYTIC LEUKAEMIA
     Route: 048
     Dates: start: 20150609, end: 20150627

REACTIONS (6)
  - Heart rate increased [Unknown]
  - Faeces discoloured [Recovering/Resolving]
  - Vision blurred [Recovered/Resolved]
  - Contusion [Recovering/Resolving]
  - Red blood cell count decreased [Unknown]
  - Dizziness [Recovering/Resolving]

NARRATIVE: CASE EVENT DATE: 2015
